FAERS Safety Report 9757945 (Version 3)
Quarter: 2014Q2

REPORT INFORMATION
  Report Type: Spontaneous
  Country: US (occurrence: US)
  Receive Date: 20131216
  Receipt Date: 20140411
  Transmission Date: 20141212
  Serious: Yes (Other)
  Sender: FDA-Public Use
  Company Number: US-BEH-2013034952

PATIENT
  Age: 60 Year
  Sex: Female
  Weight: 96 kg

DRUGS (30)
  1. PRIVIGEN [Suspect]
     Route: 042
     Dates: start: 20130305, end: 20130305
  2. PRIVIGEN [Suspect]
     Indication: IMMUNODEFICIENCY COMMON VARIABLE
     Dosage: PER MANUFACTURER^S GUIDELINES AS DIRECTED.
     Route: 042
     Dates: start: 20130628, end: 20130628
  3. PRIVIGEN [Suspect]
     Route: 042
  4. PRIVIGEN [Suspect]
     Dosage: 20 GM VIAL
     Route: 042
  5. PRIVIGEN [Suspect]
  6. PRIVIGEN [Suspect]
     Route: 042
  7. DIPHENHYDRAMINE [Concomitant]
     Indication: PREMEDICATION
  8. LIDOCAINE/PRILOCAINE [Concomitant]
     Indication: PREMEDICATION
  9. SODIUM CHLORIDE 0.9% [Concomitant]
  10. EPI-PEN [Concomitant]
     Indication: PREMEDICATION
     Dosage: AUTO INJECTOR
  11. ALBUTEROL INHALER [Concomitant]
     Dosage: HFA INHALER
  12. CYMBALTA [Concomitant]
  13. KLONOPIN [Concomitant]
  14. LASIX [Concomitant]
  15. NASONEX [Concomitant]
  16. POTASSIUM CL ER [Concomitant]
  17. BUSPIRONE HCL [Concomitant]
  18. GABAPENTIN [Concomitant]
  19. TRAZODONE [Concomitant]
  20. CLARITIN [Concomitant]
  21. ACIPHEX [Concomitant]
  22. VITAMIN D [Concomitant]
  23. ADVAIR [Concomitant]
     Dosage: 500-50 DISKUS
  24. ALBUTEROL [Concomitant]
     Dosage: 0.083% INHALATION SOLUTION
  25. SINGULAIR [Concomitant]
  26. NORTRIPTYLINE HCL [Concomitant]
  27. HYOSCYAMINE ER [Concomitant]
  28. SPIRIVA [Concomitant]
     Dosage: HANDIHALER
  29. PUB RANITIDINE [Concomitant]
  30. ZITHROMAX [Concomitant]

REACTIONS (15)
  - Pneumonia [Unknown]
  - Rash [Unknown]
  - Infusion related reaction [Unknown]
  - Myalgia [Unknown]
  - Back pain [Unknown]
  - Headache [Unknown]
  - Sinusitis [Unknown]
  - Bronchitis [Unknown]
  - Infection [Unknown]
  - Asthma [Unknown]
  - Bronchitis [Unknown]
  - Pyrexia [Unknown]
  - Headache [Unknown]
  - Sinusitis [Unknown]
  - Bronchitis [Unknown]
